FAERS Safety Report 6349539-2 (Version None)
Quarter: 2009Q3

REPORT INFORMATION
  Report Type: 
  Country: None (occurrence: None)
  Receive Date: 20090911
  Receipt Date: 20090902
  Transmission Date: 20100115
  Serious: Yes (Hospitalization)
  Sender: FDA-Public Use
  Company Number: US-ROCHE-652549

PATIENT
  Sex: Male
  Weight: 72.1 kg

DRUGS (3)
  1. CAPECITABINE [Suspect]
     Indication: BILE DUCT CANCER
     Route: 048
     Dates: start: 20090618, end: 20090710
  2. PERCOCET [Concomitant]
  3. LOMOTIL [Concomitant]

REACTIONS (3)
  - DIARRHOEA [None]
  - LIVER ABSCESS [None]
  - PERITONITIS [None]
